FAERS Safety Report 5075596-X (Version None)
Quarter: 2006Q3

REPORT INFORMATION
  Report Type: 
  Country: None (occurrence: None)
  Receive Date: 20060809
  Receipt Date: 20060728
  Transmission Date: 20061208
  Serious: Yes (Hospitalization)
  Sender: FDA-Public Use
  Company Number: US-BRISTOL-MYERS SQUIBB COMPANY-13459003

PATIENT
  Sex: Female
  Weight: 73 kg

DRUGS (5)
  1. CARDIOLITE [Suspect]
     Indication: CARDIAC STRESS TEST
     Dates: start: 20060101
  2. GLUCOPHAGE [Suspect]
     Indication: DIABETES MELLITUS
  3. ACTOS [Concomitant]
  4. VASOTEC [Concomitant]
  5. LIPITOR [Concomitant]

REACTIONS (3)
  - DIARRHOEA [None]
  - FACE OEDEMA [None]
  - RASH [None]
